FAERS Safety Report 15744014 (Version 1)
Quarter: 2018Q4

REPORT INFORMATION
  Report Type: Spontaneous
  Country: FR (occurrence: FR)
  Receive Date: 20181220
  Receipt Date: 20181220
  Transmission Date: 20190205
  Serious: Yes (Other)
  Sender: FDA-Public Use
  Company Number: FR-TEVA-2018-FR-988950

PATIENT
  Age: 31 Year
  Sex: Male

DRUGS (6)
  1. AZITHROMYCINE MONOHYDRAT?E [Suspect]
     Active Substance: AZITHROMYCIN MONOHYDRATE
     Indication: HYPERTHERMIA
     Dosage: 250 MILLIGRAM DAILY;
     Route: 048
     Dates: start: 20181119, end: 20181124
  2. PANTOPRAZOLE [Suspect]
     Active Substance: PANTOPRAZOLE
     Indication: PROPHYLAXIS
     Dosage: 20 MILLIGRAM DAILY;
     Route: 048
     Dates: start: 20181119, end: 20181126
  3. BACTRIM [Suspect]
     Active Substance: SULFAMETHOXAZOLE\TRIMETHOPRIM
     Indication: HYPERTHERMIA
     Dosage: 12 DOSAGE FORMS DAILY;
     Route: 042
     Dates: start: 20181119, end: 20181122
  4. CEFOTAXIME SODIQUE [Suspect]
     Active Substance: CEFOTAXIME SODIUM
     Indication: HYPERTHERMIA
     Dosage: 6 GRAM DAILY;
     Route: 042
     Dates: start: 20181119, end: 20181126
  5. STROMECTOL [Suspect]
     Active Substance: IVERMECTIN
     Indication: ACARODERMATITIS
     Route: 048
     Dates: start: 20181120
  6. BACTRIM [Suspect]
     Active Substance: SULFAMETHOXAZOLE\TRIMETHOPRIM
     Indication: PROPHYLAXIS
     Dosage: 1 DOSAGE FORMS DAILY;
     Route: 048
     Dates: start: 20181122, end: 20181126

REACTIONS (2)
  - Pruritus generalised [Recovered/Resolved]
  - Rash erythematous [Recovering/Resolving]

NARRATIVE: CASE EVENT DATE: 20181126
